FAERS Safety Report 6185424-7 (Version None)
Quarter: 2009Q2

REPORT INFORMATION
  Report Type: 
  Country: None (occurrence: None)
  Receive Date: 20090505
  Receipt Date: 20080611
  Transmission Date: 20091009
  Serious: Yes (Other)
  Sender: FDA-Public Use
  Company Number: 49343

PATIENT
  Age: 50 Year
  Sex: Female

DRUGS (1)
  1. OCTREOTIDE ACETATE [Suspect]
     Indication: CARCINOID SYNDROME
     Dosage: 200MCG THREE TIMES DAILY; OVER A YEAR AGO

REACTIONS (1)
  - INJECTION SITE REACTION [None]
